FAERS Safety Report 8816788 (Version 2)
Quarter: 2013Q1

REPORT INFORMATION
  Report Type: Spontaneous
  Country: DE (occurrence: None)
  Receive Date: 20121001
  Receipt Date: 20121102
  Transmission Date: 20140127
  Serious: Yes (Other)
  Sender: FDA-Public Use
  Company Number: SP06096

PATIENT
  Age: 24 Year
  Sex: Female

DRUGS (3)
  1. XIFAXAN [Suspect]
     Indication: OVERGROWTH BACTERIAL
     Route: 048
     Dates: start: 20111210, end: 20111230
  2. XIFAXAN [Suspect]
     Indication: OVERGROWTH BACTERIAL
     Route: 048
     Dates: start: 2012, end: 2012
  3. PERENTEROL [Concomitant]

REACTIONS (4)
  - Face oedema [None]
  - Cardiovascular disorder [None]
  - Rash [None]
  - Thrombocytopenia [None]
